FAERS Safety Report 21038555 (Version 2)
Quarter: 2023Q1

REPORT INFORMATION
  Report Type: Spontaneous
  Country: US (occurrence: US)
  Receive Date: 20220704
  Receipt Date: 20230110
  Transmission Date: 20230418
  Serious: Yes (Hospitalization)
  Sender: FDA-Public Use
  Company Number: US-BRISTOL-MYERS SQUIBB COMPANY-2022-061896

PATIENT
  Age: 57 Year
  Sex: Male

DRUGS (1)
  1. POMALYST [Suspect]
     Active Substance: POMALIDOMIDE
     Indication: Plasma cell myeloma in remission
     Dosage: STRENGTH: 3 MG, DAYS 1-21 OF EACH 28 DAY CYCLE?1 CAPSULE BY MOUTH WHOLE WITH WATER WITH OR WITHOUT F
     Route: 048

REACTIONS (1)
  - Hospitalisation [Unknown]
